FAERS Safety Report 23393634 (Version 1)
Quarter: 2024Q1

REPORT INFORMATION
  Report Type: Spontaneous
  Country: US (occurrence: None)
  Receive Date: 20240111
  Receipt Date: 20240111
  Transmission Date: 20240410
  Serious: Yes (Hospitalization)
  Sender: FDA-Public Use
  Company Number: None

PATIENT
  Age: 54 Year
  Sex: Male
  Weight: 78.7 kg

DRUGS (2)
  1. PAXLOVID [Suspect]
     Active Substance: NIRMATRELVIR\RITONAVIR
     Indication: COVID-19
     Dosage: FREQUENCY : TWICE A DAY;?
     Route: 048
     Dates: start: 20231231, end: 20240103
  2. TACROLIMUS [Suspect]
     Active Substance: TACROLIMUS
     Indication: Renal transplant
     Dosage: FREQUENCY : TWICE A DAY;?
     Route: 048
     Dates: start: 20230105, end: 20240103

REACTIONS (14)
  - Drug interaction [None]
  - Toxicity to various agents [None]
  - Diarrhoea [None]
  - Abdominal distension [None]
  - Vomiting [None]
  - Asthenia [None]
  - Abdominal pain [None]
  - Abdominal distension [None]
  - Diarrhoea [None]
  - Therapy interrupted [None]
  - Antiviral drug level above therapeutic [None]
  - Blood urea abnormal [None]
  - Blood creatinine abnormal [None]
  - Complications of transplanted kidney [None]

NARRATIVE: CASE EVENT DATE: 20231231
